FAERS Safety Report 7994312-2 (Version None)
Quarter: 2011Q4

REPORT INFORMATION
  Report Type: 
  Country: None (occurrence: None)
  Receive Date: 20111220
  Receipt Date: 20111213
  Transmission Date: 20120403
  Serious: Yes (Hospitalization)
  Sender: FDA-Public Use
  Company Number: US-UCBSA-047709

PATIENT
  Age: 34 Year
  Sex: Male

DRUGS (4)
  1. CLONAZEPAM [Concomitant]
     Indication: EPILEPSY
     Dosage: START DATE: 2-3 YEARS AGO
     Route: 048
  2. ZONISAMIDE [Concomitant]
     Indication: EPILEPSY
     Dosage: PROBABLY 9MONTHSAGO.
     Route: 048
  3. VIMPAT [Suspect]
     Indication: EPILEPSY
     Dosage: FIRST DOSE CLOSE TO ABOUT TWO YEARS AGO
     Route: 048
  4. LAMICTAL [Concomitant]
     Indication: EPILEPSY
     Dosage: START DATE: BEFORE THE VIMPAT VERY LONG TIME RANDOM GUESS 5 YEARS
     Route: 048

REACTIONS (1)
  - CONVULSION [None]
